FAERS Safety Report 15608633 (Version 1)
Quarter: 2018Q4

REPORT INFORMATION
  Report Type: Spontaneous
  Country: US (occurrence: US)
  Receive Date: 20181112
  Receipt Date: 20181112
  Transmission Date: 20190205
  Serious: Yes (Other)
  Sender: FDA-Public Use
  Company Number: US-ELI_LILLY_AND_COMPANY-US201811001699

PATIENT
  Sex: Male

DRUGS (1)
  1. HUMALOG [Suspect]
     Active Substance: INSULIN LISPRO
     Indication: PRODUCT USED FOR UNKNOWN INDICATION
     Dosage: 12 U, PER MEAL

REACTIONS (5)
  - Cerebral disorder [Unknown]
  - Cerebrovascular accident [Unknown]
  - Parkinson^s disease [Unknown]
  - Road traffic accident [Unknown]
  - Central auditory processing disorder [Unknown]
